FAERS Safety Report 12821281 (Version 3)
Quarter: 2017Q1

REPORT INFORMATION
  Report Type: Report from Study
  Country: US (occurrence: US)
  Receive Date: 20161006
  Receipt Date: 20170302
  Transmission Date: 20170428
  Serious: Yes (Hospitalization, Other)
  Sender: FDA-Public Use
  Company Number: US-SAOL THERAPEUTICS-2016SAO00788

PATIENT
  Age: 24 Year
  Sex: Male

DRUGS (3)
  1. LIORESAL [Suspect]
     Active Substance: BACLOFEN
     Dosage: 375.09 ?G, \DAY
     Route: 037
     Dates: end: 20151012
  2. LIORESAL [Suspect]
     Active Substance: BACLOFEN
     Dosage: 425.00 ?G, \DAY
     Dates: end: 20151106
  3. LIORESAL [Suspect]
     Active Substance: BACLOFEN
     Dosage: 424.8 ?G, \DAY
     Route: 037
     Dates: start: 20151106

REACTIONS (2)
  - Implant site infection [Recovered/Resolved]
  - Staphylococcus test positive [Recovered/Resolved]

NARRATIVE: CASE EVENT DATE: 20160916
